FAERS Safety Report 8281686-0 (Version None)
Quarter: 2012Q2

REPORT INFORMATION
  Report Type: 
  Country: None (occurrence: None)
  Receive Date: 20120410
  Receipt Date: 20120330
  Transmission Date: 20120825
  Serious: Yes (Other)
  Sender: FDA-Public Use
  Company Number: AUR-APL-2012-01647

PATIENT
  Age: 66 Year
  Sex: Male

DRUGS (3)
  1. ASPIRIN [Concomitant]
  2. AMLODIPINE [Suspect]
     Indication: HYPERTENSION
     Dosage: (5 MG),ORAL
     Route: 048
  3. SIMVASTATIN [Suspect]
     Indication: BLOOD CHOLESTEROL
     Dosage: (20 MG),ORAL
     Route: 048
     Dates: start: 20110101

REACTIONS (5)
  - FEELING COLD [None]
  - RAYNAUD'S PHENOMENON [None]
  - RENAL IMPAIRMENT [None]
  - NOCTURIA [None]
  - PERIPHERAL COLDNESS [None]
